FAERS Safety Report 25132253 (Version 1)
Quarter: 2025Q1

REPORT INFORMATION
  Report Type: Spontaneous
  Country: US (occurrence: US)
  Receive Date: 20250328
  Receipt Date: 20250328
  Transmission Date: 20250408
  Serious: Yes (Life-Threatening)
  Sender: ASPIRO PHARMA
  Company Number: US-ASPIRO-ASP2025US01401

PATIENT
  Age: 90 Year
  Sex: Female
  Weight: 45 kg

DRUGS (5)
  1. SUCCINYLCHOLINE [Suspect]
     Active Substance: SUCCINYLCHOLINE
     Indication: Anaesthesia
     Route: 065
  2. PROPOFOL [Concomitant]
     Active Substance: PROPOFOL
     Indication: Anaesthesia
     Route: 065
  3. FENTANYL [Concomitant]
     Active Substance: FENTANYL
     Indication: Anaesthesia
     Route: 065
  4. NALOXONE [Concomitant]
     Active Substance: NALOXONE
     Indication: Overdose
     Route: 042
  5. ROPIVACAINE [Concomitant]
     Active Substance: ROPIVACAINE
     Indication: Analgesic therapy
     Route: 065

REACTIONS (1)
  - Neuromuscular block prolonged [Recovering/Resolving]
